FAERS Safety Report 18209057 (Version 2)
Quarter: 2020Q3

REPORT INFORMATION
  Report Type: Spontaneous
  Country: US (occurrence: US)
  Receive Date: 20200828
  Receipt Date: 20200930
  Transmission Date: 20201103
  Serious: No
  Sender: FDA-Public Use
  Company Number: US-MYLANLABS-2020M1072732

PATIENT
  Sex: Female
  Weight: 68 kg

DRUGS (3)
  1. ATENOLOL TABLETS, USP [Suspect]
     Active Substance: ATENOLOL
     Indication: ATRIAL FIBRILLATION
  2. TIROSINT?SOL [Suspect]
     Active Substance: LEVOTHYROXINE SODIUM
     Indication: THYROID DISORDER
     Dosage: 50 MICROGRAM
     Dates: start: 202005
  3. ATENOLOL TABLETS, USP [Suspect]
     Active Substance: ATENOLOL
     Indication: HYPERTENSION
     Dosage: 25 MILLIGRAM, QD (ONCE A DAY)
     Route: 048
     Dates: start: 2000

REACTIONS (3)
  - Nausea [Not Recovered/Not Resolved]
  - Gastric disorder [Unknown]
  - Product size issue [Unknown]

NARRATIVE: CASE EVENT DATE: 2020
